FAERS Safety Report 7190707-8 (Version None)
Quarter: 2010Q4

REPORT INFORMATION
  Report Type: 
  Country: None (occurrence: None)
  Receive Date: 20101223
  Receipt Date: 20101214
  Transmission Date: 20110411
  Serious: Yes (Other)
  Sender: FDA-Public Use
  Company Number: NL-AMGEN-NLDSP2010006190

PATIENT

DRUGS (5)
  1. ENBREL [Suspect]
     Indication: RHEUMATOID ARTHRITIS
     Dosage: UNK UNK, QWK
     Dates: start: 20100824
  2. PLAQUENIL [Concomitant]
     Dosage: UNK
     Dates: end: 20101001
  3. PLAQUENIL [Concomitant]
     Dosage: 200 MG, UNK
     Route: 048
     Dates: start: 20100201
  4. PREDNISONE [Concomitant]
  5. PREDNISONE [Concomitant]
     Dosage: 5 MG, UNK
     Route: 048

REACTIONS (5)
  - ALOPECIA [None]
  - DIZZINESS [None]
  - PRURITUS [None]
  - RHEUMATOID ARTHRITIS [None]
  - TREMOR [None]
